FAERS Safety Report 8887501 (Version 1)
Quarter: 2012Q4

REPORT INFORMATION
  Report Type: Spontaneous
  Country: US (occurrence: None)
  Receive Date: 20121101
  Receipt Date: 20121101
  Transmission Date: 20130627
  Serious: Yes (Hospitalization)
  Sender: FDA-Public Use
  Company Number: None

PATIENT
  Age: 72 Year
  Sex: Female
  Weight: 59.1 kg

DRUGS (16)
  1. REVLIMID [Suspect]
     Indication: MULTIPLE MYELOMA
     Dosage: 10NG QPM PO
RECENT RESUMPTION
     Route: 048
  2. LEVAQUIN [Concomitant]
  3. AREDIA [Concomitant]
  4. CYCLOBENZAPINE [Concomitant]
  5. OXYCODONE [Concomitant]
  6. BENZONATATE [Concomitant]
  7. AMITRIPTYLINE [Concomitant]
  8. COUMADIN [Concomitant]
  9. VIT D3 [Concomitant]
  10. AMBIEN [Concomitant]
  11. VALACYCLOVIR [Concomitant]
  12. VERAPAMIL [Concomitant]
  13. MELATONIN [Concomitant]
  14. LYRICA [Concomitant]
  15. OMEPRAZOLE [Concomitant]
  16. CYMBALTA [Concomitant]

REACTIONS (3)
  - Bronchitis [None]
  - Rash [None]
  - Pulmonary toxicity [None]
